FAERS Safety Report 7336371-6 (Version None)
Quarter: 2011Q1

REPORT INFORMATION
  Report Type: 
  Country: None (occurrence: None)
  Receive Date: 20110307
  Receipt Date: 20110302
  Transmission Date: 20110831
  Serious: Yes (Other)
  Sender: FDA-Public Use
  Company Number: US-PFIZER INC-2010166217

PATIENT
  Sex: Female

DRUGS (3)
  1. EFFEXOR [Concomitant]
     Indication: DEPRESSION
     Dosage: UNK
     Dates: start: 20070801, end: 20091201
  2. PERCOCET [Concomitant]
     Indication: PAIN
     Dosage: UNK
     Dates: start: 19940201
  3. CHANTIX [Suspect]
     Indication: SMOKING CESSATION THERAPY
     Dosage: UNK
     Dates: start: 20090401, end: 20090501

REACTIONS (5)
  - LOSS OF CONSCIOUSNESS [None]
  - ANXIETY [None]
  - SUICIDE ATTEMPT [None]
  - INTENTIONAL OVERDOSE [None]
  - DEPRESSION [None]
